FAERS Safety Report 8847213 (Version 1)
Quarter: 2012Q4

REPORT INFORMATION
  Report Type: Spontaneous
  Country: US (occurrence: None)
  Receive Date: 20121017
  Receipt Date: 20121017
  Transmission Date: 20130627
  Serious: No
  Sender: FDA-Public Use
  Company Number: None

PATIENT
  Sex: Male
  Weight: 76.2 kg

DRUGS (4)
  1. PERCOCET [Suspect]
     Indication: CHRONIC PAIN
     Dosage: 10-325 orally
     Route: 048
     Dates: start: 2010
  2. PERCOCET [Suspect]
     Indication: NEUROPATHY
     Dosage: 10-325 orally
     Route: 048
     Dates: start: 2010
  3. PERCOCET [Suspect]
     Indication: LUMBAGO
     Dosage: 10-325 orally
     Route: 048
     Dates: start: 2010
  4. PERCOCET [Suspect]
     Indication: NEUROPATHY
     Dosage: 10-325 orally
     Route: 048
     Dates: start: 2010

REACTIONS (1)
  - Treatment failure [None]
